FAERS Safety Report 22266331 (Version 1)
Quarter: 2023Q2

REPORT INFORMATION
  Report Type: Spontaneous
  Country: IE (occurrence: IE)
  Receive Date: 20230428
  Receipt Date: 20230428
  Transmission Date: 20230721
  Serious: Yes (Life-Threatening, Hospitalization, Disabling)
  Sender: FDA-Public Use
  Company Number: None

PATIENT
  Age: 69 Year
  Sex: Female

DRUGS (2)
  1. CAPECITABINE [Suspect]
     Active Substance: CAPECITABINE
     Indication: Colon cancer
     Dosage: 3600 MILLIGRAM DAILY; TWICE DAILY FOR CYCLES,
     Route: 065
     Dates: start: 20230109, end: 20230323
  2. AMLODIPINE BESYLATE\OLMESARTAN MEDOXOMIL [Concomitant]
     Active Substance: AMLODIPINE BESYLATE\OLMESARTAN MEDOXOMIL
     Indication: Hypertension
     Dosage: 20MG/5MG DAILY,?FOR ACTIVE INGREDIENT OLMESARTAN MEDOXOMIL THE STRENGTH IS 20 MILLIGRAM .?FOR ACTIVE
     Route: 065
     Dates: start: 20120101, end: 20230323

REACTIONS (1)
  - Myocardial infarction [Unknown]

NARRATIVE: CASE EVENT DATE: 20230324
